FAERS Safety Report 9249509 (Version 1)
Quarter: 2013Q2

REPORT INFORMATION
  Report Type: Spontaneous
  Country: US (occurrence: US)
  Receive Date: 20130423
  Receipt Date: 20130423
  Transmission Date: 20140414
  Serious: No
  Sender: FDA-Public Use
  Company Number: US-BAYER-2013-045100

PATIENT
  Age: 83 Year
  Sex: Female
  Weight: 49.43 kg

DRUGS (5)
  1. ALEVE TABLET [Suspect]
     Indication: ANALGESIC THERAPY
     Dosage: 2 DF, TID
     Route: 048
     Dates: start: 201303
  2. CITRACAL [Concomitant]
  3. VITAMINS [Concomitant]
  4. VITAMIN D [Concomitant]
  5. GLUCOSAMINE SULFATE W/CHONDROITIN [Concomitant]

REACTIONS (3)
  - Gait disturbance [None]
  - Fall [None]
  - Incorrect dose administered [None]
